FAERS Safety Report 4385457-7 (Version None)
Quarter: 2004Q2

REPORT INFORMATION
  Report Type: 
  Country: None (occurrence: None)
  Receive Date: 20040622
  Receipt Date: 20040604
  Transmission Date: 20050107
  Serious: Yes (Hospitalization)
  Sender: FDA-Public Use
  Company Number: F03200400055

PATIENT
  Age: 76 Year
  Sex: Male
  Weight: 109 kg

DRUGS (14)
  1. OXALIPLATIN - SOLUTION - UNIT DOSE : UNKNOWN [Suspect]
     Indication: COLORECTAL CANCER METASTATIC
     Dosage: 194 MG OTHER - INTRAVENOUS NOS
     Route: 042
  2. PTK787/ZK 222584 VS. PLACEBO - UNKNOWN - UNIT DOSE : UNKNOWN [Suspect]
     Indication: COLORECTAL CANCER METASTATIC
     Dosage: ORAL
     Route: 048
     Dates: start: 20031229, end: 20040126
  3. FLUOROURACIL [Suspect]
     Indication: COLORECTAL CANCER METASTATIC
     Dates: start: 20031220
  4. LEUCOVORIN - UNKNOWN - UNIT DOSE : UNKNOWN [Suspect]
     Indication: COLORECTAL CANCER METASTATIC
     Dates: start: 20031229
  5. NEUPOGEN - FILGRASTIM - UNKNOWN - UNIT DOSE : UNKNOWN [Suspect]
     Dates: start: 20040126, end: 20040130
  6. DOCUSATE SODIUM [Concomitant]
  7. ENALAPRIL MALEATE [Concomitant]
  8. ALLOPURINOL [Concomitant]
  9. MONTELUKAST SODIUM [Concomitant]
  10. METFORMIN HCL [Concomitant]
  11. DEFLAZACORT [Concomitant]
  12. ALBUTEROL SULFATE [Concomitant]
  13. CETIRIZINE HCL [Concomitant]
  14. INSULIN [Concomitant]

REACTIONS (20)
  - ANXIETY [None]
  - ASTHENIA [None]
  - BLOOD ALBUMIN DECREASED [None]
  - BLOOD CALCIUM DECREASED [None]
  - BLOOD GLUCOSE INCREASED [None]
  - DECUBITUS ULCER [None]
  - DIZZINESS [None]
  - DYSPNOEA [None]
  - EPISTAXIS [None]
  - FATIGUE [None]
  - HYPERTENSION [None]
  - IMMUNODEFICIENCY [None]
  - LYMPHOCYTE COUNT INCREASED [None]
  - NEUTROPHIL COUNT INCREASED [None]
  - PANCYTOPENIA [None]
  - PCO2 DECREASED [None]
  - PNEUMONIA [None]
  - PROTEIN TOTAL DECREASED [None]
  - PROTEIN URINE PRESENT [None]
  - PYREXIA [None]
